FAERS Safety Report 23495008 (Version 1)
Quarter: 2024Q1

REPORT INFORMATION
  Report Type: Report from Study
  Country: TH (occurrence: None)
  Receive Date: 20240207
  Receipt Date: 20240207
  Transmission Date: 20240409
  Serious: Yes (Death, Hospitalization)
  Sender: FDA-Public Use
  Company Number: 2021A889630

PATIENT
  Age: 16554 Day
  Sex: Female
  Weight: 63.5 kg

DRUGS (1)
  1. TAGRISSO [Suspect]
     Active Substance: OSIMERTINIB
     Indication: Non-small cell lung cancer metastatic
     Route: 048
     Dates: start: 20211207, end: 20240105

REACTIONS (6)
  - Fatigue [Fatal]
  - Feeding disorder [Fatal]
  - Insomnia [Fatal]
  - Cough [Fatal]
  - Metastases to bone [Unknown]
  - Weight decreased [Unknown]

NARRATIVE: CASE EVENT DATE: 20211216
